FAERS Safety Report 7978456-7 (Version None)
Quarter: 2011Q4

REPORT INFORMATION
  Report Type: 
  Country: None (occurrence: None)
  Receive Date: 20111214
  Receipt Date: 20111209
  Transmission Date: 20120403
  Serious: Yes (Other)
  Sender: FDA-Public Use
  Company Number: SE-BAYER-2011-111496

PATIENT
  Sex: Female

DRUGS (2)
  1. LEVOTHYROXINE SODIUM [Concomitant]
     Dosage: 50 ?G, QD
  2. BETASERON [Suspect]
     Indication: MULTIPLE SCLEROSIS
     Dosage: 1 ML, QOD
     Dates: start: 20111108

REACTIONS (6)
  - URINARY RETENTION [None]
  - INJECTION SITE MASS [None]
  - BLADDER DISORDER [None]
  - MICTURITION URGENCY [None]
  - INJECTION SITE PAIN [None]
  - URINARY INCONTINENCE [None]
